FAERS Safety Report 21851317 (Version 1)
Quarter: 2023Q1

REPORT INFORMATION
  Report Type: Spontaneous
  Country: ES (occurrence: ES)
  Receive Date: 20230112
  Receipt Date: 20230112
  Transmission Date: 20230418
  Serious: Yes (Other)
  Sender: FDA-Public Use
  Company Number: ES-SA-SAC20230111000474

PATIENT
  Age: 75 Year
  Sex: Male

DRUGS (2)
  1. TOUJEO [Suspect]
     Active Substance: INSULIN GLARGINE
     Dosage: 34 IU
     Route: 058
  2. NOVORAPID [Concomitant]
     Active Substance: INSULIN ASPART

REACTIONS (2)
  - Parkinson^s disease [Unknown]
  - Dizziness [Unknown]
